FAERS Safety Report 4329940-9 (Version None)
Quarter: 2004Q1

REPORT INFORMATION
  Report Type: 
  Country: None (occurrence: None)
  Receive Date: 20040329
  Receipt Date: 20040315
  Transmission Date: 20041129
  Serious: No
  Sender: FDA-Public Use
  Company Number: 2004GB00637

PATIENT
  Age: 54 Year
  Sex: Female

DRUGS (1)
  1. CRESTOR [Suspect]
     Indication: HYPERCHOLESTEROLAEMIA
     Dosage: 10 MG DAILY PO
     Route: 048
     Dates: start: 20040201, end: 20040301

REACTIONS (4)
  - ARTHRALGIA [None]
  - DIFFICULTY IN WALKING [None]
  - JOINT SWELLING [None]
  - TENDONITIS [None]
